FAERS Safety Report 7820419-6 (Version None)
Quarter: 2011Q4

REPORT INFORMATION
  Report Type: 
  Country: None (occurrence: None)
  Receive Date: 20111018
  Receipt Date: 20111006
  Transmission Date: 20120403
  Serious: Yes (Hospitalization, Other)
  Sender: FDA-Public Use
  Company Number: DE-ROCHE-784007

PATIENT
  Sex: Female
  Weight: 79 kg

DRUGS (5)
  1. TORSEMIDE [Concomitant]
     Indication: PORTAL HYPERTENSION
  2. CALCIMAGON-D3 [Concomitant]
  3. COPEGUS [Suspect]
     Indication: HEPATITIS C
     Route: 048
     Dates: start: 20101001, end: 20110304
  4. PANTOPRAZOLE [Concomitant]
  5. PEG-INTERFERON ALFA 2A [Suspect]
     Indication: HEPATITIS C
     Route: 058
     Dates: start: 20101001, end: 20110304

REACTIONS (4)
  - ANAEMIA [None]
  - HEPATIC CIRRHOSIS [None]
  - ASCITES [None]
  - WAIST CIRCUMFERENCE INCREASED [None]
